FAERS Safety Report 21572951 (Version 1)
Quarter: 2022Q4

REPORT INFORMATION
  Report Type: Spontaneous
  Country: AU (occurrence: AU)
  Receive Date: 20221109
  Receipt Date: 20221109
  Transmission Date: 20230113
  Serious: Yes (Life-Threatening, Other)
  Sender: FDA-Public Use
  Company Number: AU-PFIZER INC-202201283571

PATIENT
  Age: 59 Year
  Sex: Male
  Weight: 79 kg

DRUGS (1)
  1. EPINEPHRINE [Suspect]
     Active Substance: EPINEPHRINE
     Indication: Anaphylactic reaction
     Dosage: 1 MG, BOLUS, FOLLOWED BY ADRENALINE INFUSION TITRATED TO RESPONSE THROUGH THE PERIPHERAL VENOUS LINE
     Route: 042

REACTIONS (1)
  - Myocardial ischaemia [Unknown]
